FAERS Safety Report 8133666-3 (Version None)
Quarter: 2012Q1

REPORT INFORMATION
  Report Type: 
  Country: None (occurrence: None)
  Receive Date: 20120213
  Receipt Date: 20120208
  Transmission Date: 20120608
  Serious: Yes (Hospitalization, Other)
  Sender: FDA-Public Use
  Company Number: US-PFIZER INC-2012035114

PATIENT
  Sex: Female
  Weight: 61.2 kg

DRUGS (7)
  1. METFORMIN [Concomitant]
     Indication: DIABETES MELLITUS
     Dosage: 500 MG, 2X/DAY
  2. WELLBUTRIN [Concomitant]
     Dosage: 300 MG, 1X/DAY
  3. VICODIN [Concomitant]
     Dosage: UNK
  4. CYMBALTA [Concomitant]
     Dosage: 90 MG, 1X/DAY
  5. XANAX [Concomitant]
     Indication: ANXIETY
     Dosage: UNK
  6. NEURONTIN [Suspect]
     Indication: NERVE COMPRESSION
     Dosage: 200 MG, 1X/DAY
     Route: 048
     Dates: start: 20090101, end: 20100101
  7. ACETAMINOPHEN [Concomitant]
     Dosage: UNK

REACTIONS (7)
  - DIZZINESS [None]
  - PAIN [None]
  - CEREBRAL HAEMORRHAGE [None]
  - MUSCULAR DYSTROPHY [None]
  - PANCREATITIS [None]
  - INTERVERTEBRAL DISC PROTRUSION [None]
  - HERPES ZOSTER [None]
